FAERS Safety Report 13326832 (Version 2)
Quarter: 2017Q1

REPORT INFORMATION
  Report Type: Spontaneous
  Country: GB (occurrence: GB)
  Receive Date: 20170312
  Receipt Date: 20170324
  Transmission Date: 20170428
  Serious: Yes (Other)
  Sender: FDA-Public Use
  Company Number: GB-TAKEDA-THQ2012A02936

PATIENT
  Age: 74 Year
  Sex: Female

DRUGS (13)
  1. SENNA                              /00142201/ [Concomitant]
     Active Substance: SENNA LEAF
     Dosage: 14 MG, BID
     Route: 048
  2. PREDNISOLONE. [Suspect]
     Active Substance: PREDNISOLONE
     Indication: PRODUCT USED FOR UNKNOWN INDICATION
     Route: 048
  3. BENDROFLUMETHIAZIDE [Concomitant]
     Active Substance: BENDROFLUMETHIAZIDE
     Dosage: 2.5 MG, QD
  4. MORPHINE [Suspect]
     Active Substance: MORPHINE
     Dosage: 35 MG, BID
     Route: 048
  5. CALCICHEW-D3 [Concomitant]
     Active Substance: CALCIUM\CHOLECALCIFEROL
     Dosage: 1 UNK, BID
     Route: 048
  6. MORPHINE [Suspect]
     Active Substance: MORPHINE
     Indication: PRODUCT USED FOR UNKNOWN INDICATION
     Dosage: 15 MG, BID
     Route: 065
  7. IPRATROPIUM [Concomitant]
     Active Substance: IPRATROPIUM
     Dosage: 500 ?G, QID
  8. FUROSEMIDE. [Concomitant]
     Active Substance: FUROSEMIDE
     Dosage: 40 MG, QD
     Route: 048
  9. LANSOPRAZOLE. [Suspect]
     Active Substance: LANSOPRAZOLE
     Indication: PRODUCT USED FOR UNKNOWN INDICATION
     Dosage: UNK
     Route: 048
  10. PROTELOS [Suspect]
     Active Substance: STRONTIUM RANELATE
     Indication: PRODUCT USED FOR UNKNOWN INDICATION
     Dosage: UNK
     Route: 048
     Dates: start: 20070504
  11. SALBUTAMOL [Concomitant]
     Active Substance: ALBUTEROL
     Dosage: UNK, QID
  12. PARACETAMOL [Concomitant]
     Active Substance: ACETAMINOPHEN
     Dosage: 1 G, QID
     Route: 048
  13. LACTULOSE. [Concomitant]
     Active Substance: LACTULOSE
     Dosage: 20 ML, BID
     Route: 048

REACTIONS (2)
  - Confusional state [Unknown]
  - Hyponatraemia [Unknown]

NARRATIVE: CASE EVENT DATE: 200705
